FAERS Safety Report 5149700-9 (Version None)
Quarter: 2006Q4

REPORT INFORMATION
  Report Type: 
  Country: None (occurrence: None)
  Receive Date: 20061113
  Receipt Date: 20060619
  Transmission Date: 20070319
  Serious: Yes (Hospitalization)
  Sender: FDA-Public Use
  Company Number: PHBS2006JP09271

PATIENT
  Age: 57 Year
  Sex: Female
  Weight: 54 kg

DRUGS (8)
  1. GLEEVEC [Suspect]
     Indication: CHRONIC MYELOID LEUKAEMIA
     Dosage: 200 MG/D
     Route: 048
     Dates: start: 20051126, end: 20060322
  2. NEORAL [Concomitant]
     Indication: SYSTEMIC LUPUS ERYTHEMATOSUS
     Dosage: 200 MG/D
     Route: 048
     Dates: start: 20051028, end: 20060126
  3. PREDNISOLONE [Concomitant]
     Indication: SYSTEMIC LUPUS ERYTHEMATOSUS
     Dosage: 10 MG/D
     Route: 048
     Dates: start: 20051028, end: 20060112
  4. DIFLUCAN [Concomitant]
     Indication: FUNGAL INFECTION
     Dosage: 200 MG/DAY
     Route: 048
     Dates: start: 20051216, end: 20060126
  5. GLAKAY [Concomitant]
     Indication: PANCYTOPENIA
     Dosage: 45 MG/DAY
     Route: 048
     Dates: start: 19990922, end: 20060531
  6. GASLON [Concomitant]
     Indication: GASTRITIS
     Dosage: 4 MG/DAY
     Route: 048
     Dates: start: 20011115, end: 20060531
  7. ISCOTIN [Concomitant]
     Indication: PULMONARY TUBERCULOSIS
     Dosage: 400 MG/DAY
     Route: 048
     Dates: start: 20051111, end: 20060126
  8. BACTRIM [Concomitant]
     Indication: PNEUMONIA
     Dosage: 960 MG/DAY
     Route: 048
     Dates: start: 20051219, end: 20060126

REACTIONS (4)
  - ABDOMINAL DISTENSION [None]
  - ASCITES [None]
  - OEDEMA PERIPHERAL [None]
  - SPLENOMEGALY [None]
